FAERS Safety Report 7017684-4 (Version None)
Quarter: 2010Q3

REPORT INFORMATION
  Report Type: 
  Country: None (occurrence: None)
  Receive Date: 20100928
  Receipt Date: 20100914
  Transmission Date: 20110219
  Serious: Yes (Other)
  Sender: FDA-Public Use
  Company Number: FR-RANBAXY-2010RR-38269

PATIENT
  Age: 61 Year
  Sex: Male

DRUGS (5)
  1. IBUPROFEN [Suspect]
     Indication: ANALGESIC THERAPY
     Dosage: UNK
     Dates: end: 20090607
  2. ADALIMUMAB [Suspect]
     Indication: RHEUMATOID ARTHRITIS
     Dosage: 40 MG, FORTNIGHT
  3. METHOTREXATE [Concomitant]
     Dosage: UNK
  4. PREDNISONE [Concomitant]
  5. IRBESARTAN [Concomitant]
     Indication: HYPERTENSION

REACTIONS (1)
  - HEPATITIS ACUTE [None]
